FAERS Safety Report 8808870 (Version 2)
Quarter: 2012Q4

REPORT INFORMATION
  Report Type: 
  Country: US (occurrence: US)
  Receive Date: 20120926
  Receipt Date: 20121016
  Transmission Date: 20130627
  Serious: Yes (Hospitalization)
  Sender: FDA-Public Use
  Company Number: US-BRISTOL-MYERS SQUIBB COMPANY-16975419

PATIENT
  Age: 61 Year
  Sex: Male
  Weight: 97 kg

DRUGS (1)
  1. YERVOY [Suspect]
     Dates: start: 201206, end: 201208

REACTIONS (3)
  - Diarrhoea haemorrhagic [Recovered/Resolved]
  - Headache [Recovered/Resolved]
  - Blood sodium decreased [Unknown]
